FAERS Safety Report 10071953 (Version 2)
Quarter: 2014Q2

REPORT INFORMATION
  Report Type: Spontaneous
  Country: IT (occurrence: IT)
  Receive Date: 20140411
  Receipt Date: 20140530
  Transmission Date: 20141212
  Serious: Yes (Hospitalization)
  Sender: FDA-Public Use
  Company Number: IT-BRISTOL-MYERS SQUIBB COMPANY-20599395

PATIENT
  Age: 39 Year
  Sex: Female

DRUGS (2)
  1. ABILIFY TABS 5 MG [Suspect]
     Indication: INTENTIONAL SELF-INJURY
     Route: 048
     Dates: start: 20140317, end: 20140317
  2. DELORAZEPAM [Suspect]
     Indication: INTENTIONAL SELF-INJURY
     Dosage: DROPS 1 MG/ML
     Route: 048
     Dates: start: 20140317, end: 20140317

REACTIONS (3)
  - Drug abuse [Not Recovered/Not Resolved]
  - Sedation [Not Recovered/Not Resolved]
  - Overdose [Unknown]
